FAERS Safety Report 8408677-0 (Version None)
Quarter: 2012Q2

REPORT INFORMATION
  Report Type: 
  Country: None (occurrence: None)
  Receive Date: 20120604
  Receipt Date: 20120206
  Transmission Date: 20120825
  Serious: No
  Sender: FDA-Public Use
  Company Number: US-NOVEN-12US004050

PATIENT
  Sex: Female

DRUGS (3)
  1. DAYTRANA [Suspect]
     Indication: PRODUCT USED FOR UNKNOWN INDICATION
     Dosage: 30 MG PATCH, TRIMMED DOWN FOR LOWER DOSE
     Route: 062
  2. DAYTRANA [Suspect]
     Dosage: 10 MG, UNK
     Route: 062
  3. DAYTRANA [Suspect]
     Dosage: 30 MG, UNK
     Route: 062

REACTIONS (3)
  - TACHYCARDIA [None]
  - PRODUCT QUALITY ISSUE [None]
  - WRONG TECHNIQUE IN DRUG USAGE PROCESS [None]
